FAERS Safety Report 5808498-9 (Version None)
Quarter: 2008Q3

REPORT INFORMATION
  Report Type: 
  Country: None (occurrence: None)
  Receive Date: 20080714
  Receipt Date: 20080702
  Transmission Date: 20090109
  Serious: Yes (Hospitalization, Other)
  Sender: FDA-Public Use
  Company Number: NL-AMGEN-US291084

PATIENT
  Age: 69 Year
  Sex: Female
  Weight: 60 kg

DRUGS (9)
  1. ENBREL [Suspect]
     Indication: RHEUMATOID ARTHRITIS
     Route: 058
     Dates: start: 20030101, end: 20080601
  2. METHOTREXATE [Suspect]
     Indication: DRUG USE FOR UNKNOWN INDICATION
     Dosage: UNK DOSE AND FREQUENCY
     Dates: end: 20080201
  3. ASCAL [Concomitant]
  4. LIPITOR [Concomitant]
  5. ACETAMINOPHEN [Concomitant]
  6. BURINEX [Concomitant]
  7. SPIRONOLACTONE [Concomitant]
  8. TRAMADOL HCL [Concomitant]
  9. ATACAND [Concomitant]

REACTIONS (3)
  - INTERSTITIAL LUNG DISEASE [None]
  - MYCOPLASMA SEROLOGY POSITIVE [None]
  - PYREXIA [None]
